FAERS Safety Report 4266894-8 (Version None)
Quarter: 2004Q1

REPORT INFORMATION
  Report Type: 
  Country: None (occurrence: None)
  Receive Date: 20040108
  Receipt Date: 20040108
  Transmission Date: 20041129
  Serious: Yes (Hospitalization)
  Sender: FDA-Public Use
  Company Number: None

PATIENT
  Age: 70 Year
  Sex: Male
  Weight: 102 kg

DRUGS (9)
  1. METHOTREXATE [Suspect]
     Indication: CENTRAL NERVOUS SYSTEM LYMPHOMA
     Dosage: 7 GMS IV
     Route: 042
     Dates: start: 20031229
  2. RITUXIMAB [Suspect]
     Indication: CENTRAL NERVOUS SYSTEM LYMPHOMA
     Dosage: 750 MG IV
     Route: 042
     Dates: start: 20031226
  3. HYZAAR [Concomitant]
  4. DECADRON [Concomitant]
  5. DILANTIN [Concomitant]
  6. ACYCLOVIR [Concomitant]
  7. BACTRIM DS [Concomitant]
  8. COMPAZINE [Concomitant]
  9. HYDROCODONE BITARTRATE [Concomitant]

REACTIONS (8)
  - FATIGUE [None]
  - FEBRILE NEUTROPENIA [None]
  - HAEMODIALYSIS [None]
  - LETHARGY [None]
  - PANCYTOPENIA [None]
  - RENAL FAILURE ACUTE [None]
  - URINARY TRACT INFECTION [None]
  - URINE OUTPUT DECREASED [None]
